FAERS Safety Report 9166415 (Version 1)
Quarter: 2013Q1

REPORT INFORMATION
  Report Type: Spontaneous
  Country: CA (occurrence: CA)
  Receive Date: 20130315
  Receipt Date: 20130315
  Transmission Date: 20140127
  Serious: Yes (Hospitalization)
  Sender: FDA-Public Use
  Company Number: PHHY2013CA008855

PATIENT
  Sex: Female

DRUGS (1)
  1. VALSARTAN [Suspect]

REACTIONS (2)
  - Drug-induced liver injury [Unknown]
  - Product quality issue [None]
